FAERS Safety Report 8697919 (Version 3)
Quarter: 2012Q4

REPORT INFORMATION
  Report Type: 
  Country: US (occurrence: US)
  Receive Date: 20120801
  Receipt Date: 20121218
  Transmission Date: 20130627
  Serious: Yes (Hospitalization)
  Sender: FDA-Public Use
  Company Number: US-GILEAD-2012-0058964

PATIENT
  Age: 56 Year
  Sex: Female

DRUGS (1)
  1. LETAIRIS [Suspect]
     Indication: PRODUCT USED FOR UNKNOWN INDICATION
     Dosage: 5 mg, UNK
     Route: 048
     Dates: start: 20120411

REACTIONS (10)
  - Haemoptysis [Unknown]
  - Cough [Unknown]
  - Haematemesis [Unknown]
  - Epistaxis [Unknown]
  - Breath sounds abnormal [Unknown]
  - Sputum discoloured [Unknown]
  - Tooth disorder [Unknown]
  - Epistaxis [Unknown]
  - Oxygen saturation decreased [Unknown]
  - Haematocrit decreased [Unknown]
